FAERS Safety Report 16678319 (Version 1)
Quarter: 2019Q3

REPORT INFORMATION
  Report Type: Spontaneous
  Country: US (occurrence: US)
  Receive Date: 20190806
  Receipt Date: 20190806
  Transmission Date: 20191004
  Serious: Yes (Other)
  Sender: FDA-Public Use
  Company Number: None

PATIENT
  Age: 41 Year
  Sex: Female

DRUGS (9)
  1. METHOTREXATE. [Concomitant]
     Active Substance: METHOTREXATE
  2. PREDNISONE. [Concomitant]
     Active Substance: PREDNISONE
  3. NAPROXEN. [Concomitant]
     Active Substance: NAPROXEN
  4. FERROUS SULFATE. [Concomitant]
     Active Substance: FERROUS SULFATE
  5. HYDROXYCHLOR [Concomitant]
     Active Substance: HYDROXYCHLOROQUINE
  6. METHYLPRED [Concomitant]
     Active Substance: METHYLPREDNISOLONE
  7. KETOROLAC [Concomitant]
     Active Substance: KETOROLAC TROMETHAMINE
  8. FOLIC ACID. [Concomitant]
     Active Substance: FOLIC ACID
  9. HUMIRA [Suspect]
     Active Substance: ADALIMUMAB
     Indication: RHEUMATOID ARTHRITIS
     Dosage: ?          OTHER FREQUENCY:EVERY 2 WEEKS;?
     Route: 058
     Dates: start: 20190514, end: 20190806

REACTIONS (1)
  - Mycobacterium tuberculosis complex test positive [None]
